FAERS Safety Report 17457035 (Version 1)
Quarter: 2020Q1

REPORT INFORMATION
  Report Type: Spontaneous
  Country: PR (occurrence: PR)
  Receive Date: 20200225
  Receipt Date: 20200225
  Transmission Date: 20200409
  Serious: No
  Sender: FDA-Public Use
  Company Number: PR-PFIZER INC-2020080951

PATIENT
  Age: 50 Year
  Sex: Female
  Weight: 108.86 kg

DRUGS (3)
  1. XANAX [Concomitant]
     Active Substance: ALPRAZOLAM
     Indication: DEPRESSION
     Dosage: UNK
  2. CLONAZEPAM. [Concomitant]
     Active Substance: CLONAZEPAM
     Indication: DEPRESSION
     Dosage: UNK
  3. PREMPRO [Suspect]
     Active Substance: ESTROGENS, CONJUGATED\MEDROXYPROGESTERONE ACETATE
     Indication: HORMONE REPLACEMENT THERAPY
     Dosage: 1 DF, DAILY [0.4- 1.5 MG, 1 PER DAY]

REACTIONS (3)
  - Depression [Unknown]
  - Feeling abnormal [Unknown]
  - Hypertension [Unknown]
